FAERS Safety Report 18776858 (Version 4)
Quarter: 2023Q1

REPORT INFORMATION
  Report Type: Spontaneous
  Country: PL (occurrence: PL)
  Receive Date: 20210122
  Receipt Date: 20230220
  Transmission Date: 20230418
  Serious: Yes (Hospitalization, Other)
  Sender: FDA-Public Use
  Company Number: PL-PFIZER INC-2021038600

PATIENT
  Age: 68 Year
  Sex: Male

DRUGS (31)
  1. ATORVASTATIN CALCIUM [Interacting]
     Active Substance: ATORVASTATIN CALCIUM
     Indication: Cerebrovascular accident
     Dosage: 40 MG, 1X/DAY
     Route: 048
  2. ATORVASTATIN CALCIUM [Interacting]
     Active Substance: ATORVASTATIN CALCIUM
     Indication: Atrial fibrillation
  3. FLUCONAZOLE [Interacting]
     Active Substance: FLUCONAZOLE
     Indication: Infectious disease carrier
     Dosage: 100 MILLIGRAM, BID
     Route: 065
  4. FLUCONAZOLE [Interacting]
     Active Substance: FLUCONAZOLE
     Indication: Antibiotic prophylaxis
     Dosage: 200 MG
     Route: 065
  5. FLUCONAZOLE [Interacting]
     Active Substance: FLUCONAZOLE
     Indication: Pruritus genital
     Dosage: 200 MILLIGRAM, QD (100 MG, 2X PER DAY)
     Route: 048
  6. FLUCONAZOLE [Interacting]
     Active Substance: FLUCONAZOLE
     Indication: Infection
  7. QUETIAPINE [Interacting]
     Active Substance: QUETIAPINE
     Indication: Insomnia
     Dosage: 25 MILLIGRAM, QD (INITIAL DOSE AT NIGHT)
     Route: 065
  8. QUETIAPINE [Interacting]
     Active Substance: QUETIAPINE
     Dosage: 50 MILLIGRAM, QD (INCREASED AT NIGHT)
     Route: 065
  9. RIVAROXABAN [Interacting]
     Active Substance: RIVAROXABAN
     Indication: Cerebrovascular accident
     Dosage: 20 MILLIGRAM
     Route: 048
  10. RIVAROXABAN [Interacting]
     Active Substance: RIVAROXABAN
     Indication: Atrial fibrillation
  11. RIVAROXABAN [Interacting]
     Active Substance: RIVAROXABAN
     Indication: Cardiovascular disorder
  12. METOPROLOL [Interacting]
     Active Substance: METOPROLOL
     Indication: Cerebrovascular accident
     Dosage: 100 MG, 1X/DAY
     Route: 048
  13. METOPROLOL [Interacting]
     Active Substance: METOPROLOL
     Indication: Atrial fibrillation
  14. FUROSEMIDE [Interacting]
     Active Substance: FUROSEMIDE
     Indication: Cerebrovascular accident
     Dosage: 40 MG
     Route: 048
  15. FUROSEMIDE [Interacting]
     Active Substance: FUROSEMIDE
     Indication: Atrial fibrillation
  16. FUROSEMIDE [Interacting]
     Active Substance: FUROSEMIDE
     Indication: Cardiovascular disorder
  17. DIAZEPAM [Suspect]
     Active Substance: DIAZEPAM
     Indication: Insomnia
     Dosage: 10 MG, 1X/DAY
     Route: 065
  18. CIPROFLOXACIN [Interacting]
     Active Substance: CIPROFLOXACIN
     Indication: Infectious disease carrier
     Dosage: 500 MILLIGRAM (2X500MG)
     Route: 048
  19. CIPROFLOXACIN [Interacting]
     Active Substance: CIPROFLOXACIN
     Indication: Antibiotic prophylaxis
     Dosage: 1000 MILLIGRAM, QD
     Route: 048
  20. CIPROFLOXACIN [Interacting]
     Active Substance: CIPROFLOXACIN
     Indication: Pruritus genital
  21. CIPROFLOXACIN [Interacting]
     Active Substance: CIPROFLOXACIN
     Indication: Infection
  22. CETIRIZINE HYDROCHLORIDE [Interacting]
     Active Substance: CETIRIZINE HYDROCHLORIDE
     Indication: Off label use
     Dosage: 10 MG, QD
     Route: 065
  23. CETIRIZINE HYDROCHLORIDE [Interacting]
     Active Substance: CETIRIZINE HYDROCHLORIDE
     Indication: Pruritus genital
  24. XARELTO [Interacting]
     Active Substance: RIVAROXABAN
     Indication: Atrial fibrillation
     Dosage: 20 MG
     Route: 048
  25. TRAZODONE [Interacting]
     Active Substance: TRAZODONE HYDROCHLORIDE
     Indication: Insomnia
     Dosage: 50 MILLIGRAM, QD (3 HOURS BEFORE BEDTIME)
     Route: 065
  26. TRAZODONE [Interacting]
     Active Substance: TRAZODONE HYDROCHLORIDE
     Indication: Somnolence
  27. CETIRIZINE [Interacting]
     Active Substance: CETIRIZINE HYDROCHLORIDE
     Indication: Pruritus genital
     Dosage: 10 MG, 1X/DAY
     Route: 065
  28. CETIRIZINE [Interacting]
     Active Substance: CETIRIZINE HYDROCHLORIDE
     Indication: Somnolence
  29. METOPROLOL [Concomitant]
     Active Substance: METOPROLOL
     Dosage: UNK
     Route: 065
  30. FUROSEMIDE [Concomitant]
     Active Substance: FUROSEMIDE
     Dosage: UNK
     Route: 065
  31. QUETIAPINE [Concomitant]
     Active Substance: QUETIAPINE
     Dosage: UNK
     Route: 065

REACTIONS (16)
  - Pruritus genital [Recovered/Resolved]
  - Penis injury [Recovered/Resolved]
  - Drug interaction [Unknown]
  - Haemorrhage [Recovered/Resolved]
  - Genital haemorrhage [Unknown]
  - Somnolence [Unknown]
  - Fall [Unknown]
  - Pruritus [Recovered/Resolved]
  - Insomnia [Unknown]
  - Penile haemorrhage [Recovered/Resolved]
  - Drug ineffective [Unknown]
  - Drug level increased [Unknown]
  - Condition aggravated [Recovered/Resolved]
  - Contraindicated product administered [Unknown]
  - Product use in unapproved indication [Unknown]
  - Off label use [Unknown]
